FAERS Safety Report 17298365 (Version 3)
Quarter: 2022Q4

REPORT INFORMATION
  Report Type: Report from Study
  Country: US (occurrence: US)
  Receive Date: 20200122
  Receipt Date: 20221213
  Transmission Date: 20230113
  Serious: Yes (Other)
  Sender: FDA-Public Use
  Company Number: None

PATIENT
  Sex: Female

DRUGS (1)
  1. BEOVU [Suspect]
     Active Substance: BROLUCIZUMAB-DBLL
     Indication: Neovascular age-related macular degeneration
     Dosage: UNK (VIAL)
     Route: 065

REACTIONS (4)
  - Glaucoma [Unknown]
  - Idiopathic pulmonary fibrosis [Unknown]
  - Visual impairment [Unknown]
  - Product dose omission issue [Unknown]
